FAERS Safety Report 14966831 (Version 1)
Quarter: 2018Q2

REPORT INFORMATION
  Report Type: Spontaneous
  Country: CN (occurrence: CN)
  Receive Date: 20180604
  Receipt Date: 20180604
  Transmission Date: 20180711
  Serious: No
  Sender: FDA-Public Use
  Company Number: CN-CHEPLA-2011513

PATIENT
  Sex: Female

DRUGS (1)
  1. XENICAL [Suspect]
     Active Substance: ORLISTAT
     Indication: WEIGHT DECREASED
     Route: 048
     Dates: start: 201709

REACTIONS (4)
  - Drug ineffective [Unknown]
  - Overdose [Unknown]
  - Abnormal faeces [Unknown]
  - Product counterfeit [Unknown]
